FAERS Safety Report 6479960-3 (Version None)
Quarter: 2009Q4

REPORT INFORMATION
  Report Type: 
  Country: None (occurrence: None)
  Receive Date: 20091208
  Receipt Date: 20091116
  Transmission Date: 20100525
  Serious: Yes (Hospitalization, Other)
  Sender: FDA-Public Use
  Company Number: US-SANOFI-AVENTIS-2009SA003857

PATIENT
  Age: 43 Year
  Sex: Female

DRUGS (5)
  1. LEVAQUIN [Suspect]
     Indication: INFECTION
     Route: 048
     Dates: start: 20091001, end: 20091001
  2. AMBIEN [Suspect]
     Indication: INSOMNIA
  3. ADVIL [Suspect]
     Indication: INSOMNIA
  4. FLAGYL [Concomitant]
     Indication: INFECTION
     Route: 048
     Dates: start: 20091001
  5. COGENTIN [Concomitant]
     Indication: MOVEMENT DISORDER
     Route: 048
     Dates: start: 20091001

REACTIONS (3)
  - INSOMNIA [None]
  - PARANOIA [None]
  - PSYCHOTIC DISORDER [None]
